FAERS Safety Report 7530461-0 (Version None)
Quarter: 2011Q2

REPORT INFORMATION
  Report Type: 
  Country: None (occurrence: None)
  Receive Date: 20110607
  Receipt Date: 20110511
  Transmission Date: 20111010
  Serious: Yes (Other)
  Sender: FDA-Public Use
  Company Number: DE-BAYER-201047474GPV

PATIENT
  Age: 51 Year
  Sex: Female

DRUGS (6)
  1. NEBIVOLOL HCL [Concomitant]
  2. IBUPROFEN [Suspect]
     Indication: TOOTHACHE
     Dosage: 400 MG (DAILY DOSE), , ORAL
     Route: 048
  3. LORAZEPAM [Concomitant]
  4. VENLAFAXINE HCL [Concomitant]
  5. ZOLPIDEM [Concomitant]
  6. ANTELEPSIN [Concomitant]

REACTIONS (1)
  - INTESTINAL HAEMORRHAGE [None]
